FAERS Safety Report 9790536 (Version 1)
Quarter: 2013Q4

REPORT INFORMATION
  Report Type: Spontaneous
  Country: FR (occurrence: FR)
  Receive Date: 20131231
  Receipt Date: 20131231
  Transmission Date: 20140711
  Serious: Yes (Hospitalization, Other)
  Sender: FDA-Public Use
  Company Number: FR-PFIZER INC-2013368163

PATIENT
  Age: 73 Year
  Sex: Female

DRUGS (11)
  1. TAHOR [Suspect]
     Indication: HYPERCHOLESTEROLAEMIA
     Dosage: 80 MG, DAILY
     Route: 048
  2. PREVISCAN [Suspect]
     Indication: ANTIPHOSPHOLIPID SYNDROME
     Dosage: FOR INR BETWEEN 2 AND 3
     Route: 048
     Dates: end: 20131007
  3. KARDEGIC [Suspect]
     Indication: MYOCARDIAL INFARCTION
     Dosage: 75 MG, 1X/DAY
     Route: 048
     Dates: end: 20131011
  4. LASILIX [Suspect]
     Indication: CARDIAC FAILURE
     Dosage: 40 MG, DAILY
     Route: 048
  5. PERINDOPRIL [Suspect]
     Indication: HYPERTENSION
     Dosage: 4 MG, DAILY
     Route: 048
  6. GALVUS [Suspect]
     Indication: TYPE 2 DIABETES MELLITUS
     Dosage: 50 MG, 2X/DAY
     Route: 048
  7. AMLODIPINE BESILATE [Suspect]
     Indication: HYPERTENSION
     Dosage: 5 MG, DAILY
     Route: 048
  8. LEVOTHYROX [Concomitant]
     Dosage: 50 UG, UNK
  9. CETIRIZINE ACTAVIS [Concomitant]
     Dosage: 10 MG, DAILY
  10. FUMAFER [Concomitant]
     Dosage: 66 MG, DAILY
  11. ZOLPIDEM ARROW [Concomitant]
     Dosage: 10 MG, DAILY

REACTIONS (5)
  - Gastrointestinal haemorrhage [Recovered/Resolved]
  - Haemorrhagic anaemia [Recovered/Resolved]
  - Overdose [Recovered/Resolved]
  - Renal failure acute [Unknown]
  - Metabolic acidosis [Unknown]
